FAERS Safety Report 8830736 (Version 1)
Quarter: 2012Q4

REPORT INFORMATION
  Report Type: 
  Country: US (occurrence: US)
  Receive Date: 20121008
  Receipt Date: 20121008
  Transmission Date: 20130627
  Serious: No
  Sender: FDA-Public Use
  Company Number: US-009507513-1209USA011221

PATIENT
  Sex: Female

DRUGS (5)
  1. SAPHRIS [Suspect]
     Indication: BIPOLAR DISORDER
     Dosage: 5 mg in the day and 10 mg at night
     Route: 060
  2. COMBIVENT [Concomitant]
  3. LOESTRIN [Concomitant]
  4. VITAMINS (UNSPECIFIED) [Concomitant]
  5. BACTRIM [Concomitant]

REACTIONS (2)
  - Swollen tongue [Recovering/Resolving]
  - Inappropriate schedule of drug administration [Unknown]
